FAERS Safety Report 16038367 (Version 1)
Quarter: 2019Q1

REPORT INFORMATION
  Report Type: Spontaneous
  Country: CN (occurrence: CN)
  Receive Date: 20190305
  Receipt Date: 20190305
  Transmission Date: 20190418
  Serious: Yes (Hospitalization, Other)
  Sender: FDA-Public Use
  Company Number: CN-SA-2019SA057441

PATIENT
  Age: 41 Year
  Sex: Male

DRUGS (3)
  1. VALPROATE SODIUM. [Suspect]
     Active Substance: VALPROATE SODIUM
     Indication: EPILEPSY
     Dosage: UNK
     Route: 048
  2. PHENYTOIN SODIUM. [Suspect]
     Active Substance: PHENYTOIN SODIUM
     Indication: EPILEPSY
     Dosage: UNK
     Route: 048
  3. ENOXAPARIN SODIUM. [Suspect]
     Active Substance: ENOXAPARIN SODIUM
     Indication: ANTICOAGULANT THERAPY
     Dosage: 6000 IU, Q12H
     Route: 058

REACTIONS (18)
  - Cerebral venous thrombosis [Recovered/Resolved]
  - Gaze palsy [Recovered/Resolved]
  - Drug ineffective [Unknown]
  - Intracranial pressure increased [Recovered/Resolved]
  - Thrombosis [Recovering/Resolving]
  - Sinusitis [Recovered/Resolved]
  - Antithrombin III deficiency [Recovered/Resolved]
  - Pyruvate carboxylase deficiency [Recovered/Resolved]
  - Dyskinesia [Not Recovered/Not Resolved]
  - Headache [Recovered/Resolved]
  - Condition aggravated [Recovered/Resolved]
  - Nausea [Recovered/Resolved]
  - Vomiting [Recovered/Resolved]
  - Spinal osteoarthritis [Not Recovered/Not Resolved]
  - Sinusitis [Recovering/Resolving]
  - Muscular weakness [Recovered/Resolved]
  - Oedema [Recovered/Resolved]
  - Venous thrombosis [Recovered/Resolved]
